FAERS Safety Report 18840258 (Version 1)
Quarter: 2021Q1

REPORT INFORMATION
  Report Type: Spontaneous
  Country: FR (occurrence: FR)
  Receive Date: 20210204
  Receipt Date: 20210204
  Transmission Date: 20210419
  Serious: Yes (Hospitalization)
  Sender: FDA-Public Use
  Company Number: FR-ROCHE-2763098

PATIENT
  Age: 66 Year
  Sex: Male

DRUGS (2)
  1. XOLAIR [Suspect]
     Active Substance: OMALIZUMAB
     Indication: ASTHMA
     Route: 058
     Dates: start: 201512
  2. CORTANCYL [Suspect]
     Active Substance: PREDNISONE
     Indication: ASTHMA
     Dosage: 12.5MG
     Route: 048
     Dates: start: 2013

REACTIONS (1)
  - Lung abscess [Recovering/Resolving]

NARRATIVE: CASE EVENT DATE: 20200729
